FAERS Safety Report 5599630-3 (Version None)
Quarter: 2008Q1

REPORT INFORMATION
  Report Type: 
  Country: None (occurrence: None)
  Receive Date: 20080118
  Receipt Date: 20080103
  Transmission Date: 20080703
  Serious: Yes (Hospitalization)
  Sender: FDA-Public Use
  Company Number: S08-FRA-00123-01

PATIENT
  Age: 62 Year
  Sex: Female

DRUGS (11)
  1. ESCITALOPRAM [Suspect]
     Dates: end: 20070715
  2. BARACLUDE [Suspect]
     Dosage: 500 MCG QD PO
     Route: 048
     Dates: start: 20050101, end: 20070715
  3. RITUXAN [Suspect]
     Indication: MUSCULOSKELETAL PAIN
     Dosage: 1 UNK ONCE IV
     Route: 042
     Dates: start: 20070618, end: 20070618
  4. RITUXAN [Suspect]
     Indication: MUSCULOSKELETAL PAIN
     Dosage: 1 UNK ONCE IV
     Route: 042
     Dates: start: 20070703, end: 20070703
  5. RITUXAN [Suspect]
     Indication: MUSCULOSKELETAL PAIN
     Dosage: 1 UNK ONCE IV
     Route: 042
     Dates: start: 20070703, end: 20070703
  6. TERCIAN (CYAMEMAZINE) [Suspect]
     Dosage: 25 MG QD PO
     Route: 048
     Dates: end: 20070715
  7. NOCTRAN 10 [Suspect]
     Dosage: 10 MG QD PO
     Route: 048
     Dates: end: 20070715
  8. DURAGESIC-100 [Suspect]
     Dosage: 50 MCG TIN AP
     Dates: end: 20070715
  9. DULCOLAX [Concomitant]
  10. PREVISCAN (FLUINDIONE) [Concomitant]
  11. AERIUS /FIN/ (DESLORATADINE) [Concomitant]

REACTIONS (3)
  - BLOOD CREATINE INCREASED [None]
  - PANCREATITIS ACUTE [None]
  - PULMONARY EMBOLISM [None]
